FAERS Safety Report 8525464-3 (Version None)
Quarter: 2012Q3

REPORT INFORMATION
  Report Type: 
  Country: None (occurrence: None)
  Receive Date: 20120710
  Receipt Date: 20120626
  Transmission Date: 20120928
  Serious: Yes (Hospitalization)
  Sender: FDA-Public Use
  Company Number: 1340633

PATIENT
  Age: 56 Year
  Sex: Male
  Weight: 22.6799 kg

DRUGS (13)
  1. LINEZOLID [Suspect]
     Indication: STAPHYLOCOCCAL INFECTION
     Dosage: 600 MG MILLIGRAM(S), 1 DAY, ORAL
     Route: 048
     Dates: start: 20120605, end: 20120607
  2. (CO-PHENOTORPE) [Concomitant]
  3. ACETAMINOPHEN AND CODEINE PHOSPHATE [Concomitant]
  4. BISOPROLOL FUMARATE [Concomitant]
  5. (CALCICHEW D3) [Concomitant]
  6. VANCOMYCIN HYDROCHLORIDE [Suspect]
     Indication: STAPHYLOCOCCAL INFECTION
     Dosage: INTRAVENOUS (NOT OTHERWISE SPECIFIED)
     Route: 042
     Dates: start: 20120603, end: 20120605
  7. ALENDRONATE SODIUM [Concomitant]
  8. ENOXAPARIN [Concomitant]
  9. (ALFACALCIDOL) [Concomitant]
  10. ASPIRIN [Concomitant]
  11. CLOPIDOGREL [Concomitant]
  12. SIMVASTATIN [Concomitant]
  13. AMITRIPTYLINE HYDROCHLORIDE [Concomitant]

REACTIONS (2)
  - RENAL FAILURE ACUTE [None]
  - PANCYTOPENIA [None]
